FAERS Safety Report 8166620-6 (Version None)
Quarter: 2012Q1

REPORT INFORMATION
  Report Type: 
  Country: None (occurrence: None)
  Receive Date: 20120227
  Receipt Date: 20120217
  Transmission Date: 20120608
  Serious: Yes (Hospitalization)
  Sender: FDA-Public Use
  Company Number: JP-SANOFI-AVENTIS-2010SA046374

PATIENT
  Age: 11 Year
  Sex: Male

DRUGS (2)
  1. LASIX [Suspect]
     Indication: OEDEMA
     Route: 048
     Dates: start: 20100626, end: 20100706
  2. PHENOBARBITAL TAB [Suspect]
     Indication: CONVULSION
     Route: 065
     Dates: start: 20100622, end: 20100709

REACTIONS (1)
  - DRUG RASH WITH EOSINOPHILIA AND SYSTEMIC SYMPTOMS [None]
